FAERS Safety Report 23236038 (Version 1)
Quarter: 2023Q4

REPORT INFORMATION
  Report Type: Spontaneous
  Country: BO (occurrence: BO)
  Receive Date: 20231128
  Receipt Date: 20231128
  Transmission Date: 20240110
  Serious: Yes (Other)
  Sender: FDA-Public Use
  Company Number: BO-002147023-NVSC2023BO249553

PATIENT
  Sex: Female

DRUGS (1)
  1. GLIVEC [Suspect]
     Active Substance: IMATINIB MESYLATE
     Indication: Chronic myeloid leukaemia
     Dosage: 400MG (4 X 100 MG)
     Route: 065

REACTIONS (4)
  - Nephrolithiasis [Unknown]
  - Haematuria [Unknown]
  - General physical health deterioration [Unknown]
  - Cytogenetic analysis abnormal [Unknown]
